FAERS Safety Report 8445582-8 (Version None)
Quarter: 2012Q2

REPORT INFORMATION
  Report Type: 
  Country: None (occurrence: None)
  Receive Date: 20120618
  Receipt Date: 20120607
  Transmission Date: 20120825
  Serious: Yes (Other)
  Sender: FDA-Public Use
  Company Number: US-ASTRAZENECA-2012SE19462

PATIENT
  Age: 69 Year
  Sex: Female

DRUGS (2)
  1. TOPROL-XL [Suspect]
     Route: 048
  2. NEXIUM [Suspect]
     Route: 048

REACTIONS (19)
  - CORONARY ARTERY OCCLUSION [None]
  - RENAL DISORDER [None]
  - GLAUCOMA [None]
  - ADVERSE EVENT [None]
  - FIBROMYALGIA [None]
  - BLOOD CHOLESTEROL INCREASED [None]
  - EXOSTOSIS [None]
  - THYROID NEOPLASM [None]
  - MYOCARDIAL INFARCTION [None]
  - INTERVERTEBRAL DISC PROTRUSION [None]
  - CARPAL TUNNEL SYNDROME [None]
  - GASTROOESOPHAGEAL REFLUX DISEASE [None]
  - NEUROPATHY PERIPHERAL [None]
  - MALAISE [None]
  - SPINAL FRACTURE [None]
  - POLYARTHRITIS [None]
  - MYELOPATHY [None]
  - HYPERTENSION [None]
  - DIABETES MELLITUS [None]
